FAERS Safety Report 12618156 (Version 3)
Quarter: 2016Q3

REPORT INFORMATION
  Report Type: Spontaneous
  Country: BE (occurrence: BE)
  Receive Date: 20160803
  Receipt Date: 20160927
  Transmission Date: 20161109
  Serious: Yes (Life-Threatening, Other)
  Sender: FDA-Public Use
  Company Number: BE-VIIV HEALTHCARE LIMITED-BE2016GSK110276

PATIENT
  Age: 36 Year
  Sex: Female
  Weight: 50 kg

DRUGS (5)
  1. TIVICAY [Suspect]
     Active Substance: DOLUTEGRAVIR SODIUM
     Indication: PRODUCT USED FOR UNKNOWN INDICATION
     Dosage: 50 MG, UNK
     Dates: start: 20160608, end: 20160624
  2. TRIUMEQ [Suspect]
     Active Substance: ABACAVIR SULFATE\DOLUTEGRAVIR SODIUM\LAMIVUDINE
     Indication: PRODUCT USED FOR UNKNOWN INDICATION
     Dosage: UNK
     Route: 048
  3. 3TC [Suspect]
     Active Substance: LAMIVUDINE
     Indication: PRODUCT USED FOR UNKNOWN INDICATION
  4. ZIAGEN [Suspect]
     Active Substance: ABACAVIR SULFATE
     Indication: PRODUCT USED FOR UNKNOWN INDICATION
     Dosage: 600 MG, UNK
     Route: 048
     Dates: start: 20160609, end: 20160624
  5. PRAREDUCT [Suspect]
     Active Substance: PRAVASTATIN SODIUM
     Indication: NEPHROTIC SYNDROME
     Dosage: 20 MG, UNK
     Dates: start: 20160609, end: 20160624

REACTIONS (10)
  - Hepatitis toxic [Recovered/Resolved]
  - Pleural effusion [Unknown]
  - Acute kidney injury [Unknown]
  - Nausea [Unknown]
  - Hepatic failure [Unknown]
  - Hepatitis [Recovering/Resolving]
  - Abdominal pain [Unknown]
  - Encephalopathy [Recovering/Resolving]
  - Pyrexia [Unknown]
  - Hepatosplenomegaly [Unknown]

NARRATIVE: CASE EVENT DATE: 20160528
